FAERS Safety Report 9232173 (Version 1)
Quarter: 2013Q2

REPORT INFORMATION
  Report Type: Spontaneous
  Country: US (occurrence: US)
  Receive Date: 20130415
  Receipt Date: 20130415
  Transmission Date: 20140414
  Serious: No
  Sender: FDA-Public Use
  Company Number: US-009507513-2012SP028547

PATIENT
  Sex: 0

DRUGS (2)
  1. LOTRIMIN AF ATHLETE^S FOOT [Suspect]
     Indication: FUNGAL INFECTION
     Dosage: UNK UNK, UNKNOWN
     Route: 061
  2. LOTRIMIN AF ATHLETE^S FOOT [Suspect]
     Indication: MEDICAL OBSERVATION

REACTIONS (3)
  - Drug administered to patient of inappropriate age [Unknown]
  - Off label use [Unknown]
  - Off label use [Unknown]
